FAERS Safety Report 6521489-8 (Version None)
Quarter: 2009Q4

REPORT INFORMATION
  Report Type: 
  Country: None (occurrence: None)
  Receive Date: 20091214
  Receipt Date: 20091214
  Transmission Date: 20100525
  Serious: Yes (Other)
  Sender: FDA-Public Use
  Company Number: 641312

PATIENT
  Age: 62 Year
  Sex: Male
  Weight: 107 kg

DRUGS (13)
  1. PEGASYS [Suspect]
     Indication: HEPATITIS C
     Dosage: 180 UG 1 PER 1 WEEK SUBCUTANEOUS
     Route: 058
     Dates: start: 20090412
  2. RIBAVIRIN [Suspect]
     Indication: HEPATITIS C
     Dosage: 600 MG 2 PER 1 DAY ORAL
     Route: 048
     Dates: start: 20090412
  3. MECLIZINE [Concomitant]
  4. ALLOPURINOL [Concomitant]
  5. PIROXICAM [Concomitant]
  6. CYCLOBENZAPRINE HYDROCHLORIDE [Concomitant]
  7. TRAMADOL HCL [Concomitant]
  8. VERAPAMIL [Concomitant]
  9. OXAPROZIN [Concomitant]
  10. INDAPAMIDE (NIDAPAMIDE) [Concomitant]
  11. ATACAND [Concomitant]
  12. ZOLPIDEM TARTRATE [Concomitant]
  13. LISINOPRIL/HYDROCHLOROTHIAZIDE (HYDROCHLOROTHIAZIDE/LISINOPRIL) [Concomitant]

REACTIONS (14)
  - ALANINE AMINOTRANSFERASE INCREASED [None]
  - ALOPECIA [None]
  - ASPARTATE AMINOTRANSFERASE [None]
  - ASPARTATE AMINOTRANSFERASE INCREASED [None]
  - BLOOD BILIRUBIN INCREASED [None]
  - HAEMOGLOBIN DECREASED [None]
  - INSOMNIA [None]
  - PLATELET COUNT DECREASED [None]
  - PRURITUS [None]
  - RASH [None]
  - RASH ERYTHEMATOUS [None]
  - RED BLOOD CELL COUNT DECREASED [None]
  - WHITE BLOOD CELL COUNT [None]
  - WHITE BLOOD CELL COUNT DECREASED [None]
